FAERS Safety Report 5591930-6 (Version None)
Quarter: 2008Q1

REPORT INFORMATION
  Report Type: 
  Country: None (occurrence: None)
  Receive Date: 20080115
  Receipt Date: 20080107
  Transmission Date: 20080703
  Serious: Yes (Other)
  Sender: FDA-Public Use
  Company Number: HN-ELI_LILLY_AND_COMPANY-HN200710004854

PATIENT
  Age: 69 Year
  Sex: Female

DRUGS (1)
  1. TERIPARATIDE [Suspect]
     Indication: OSTEOPOROSIS
     Dosage: 20 UG, DAILY (1/D)
     Route: 058

REACTIONS (7)
  - BLOOD CREATININE ABNORMAL [None]
  - DRUG INEFFECTIVE [None]
  - DYSGEUSIA [None]
  - HYPERCALCAEMIA [None]
  - JOINT INJURY [None]
  - MULTIPLE MYELOMA [None]
  - NAUSEA [None]
